FAERS Safety Report 8113620-8 (Version None)
Quarter: 2012Q1

REPORT INFORMATION
  Report Type: 
  Country: None (occurrence: None)
  Receive Date: 20120131
  Receipt Date: 20120120
  Transmission Date: 20120608
  Serious: Yes (Other)
  Sender: FDA-Public Use
  Company Number: SE-GDP-12412853

PATIENT
  Age: 51 Year
  Sex: Female

DRUGS (1)
  1. ORACEA [Suspect]
     Indication: PRODUCT USED FOR UNKNOWN INDICATION
     Dosage: ORAL
     Route: 048

REACTIONS (2)
  - ANGIOEDEMA [None]
  - LIP SWELLING [None]
